FAERS Safety Report 6686377-5 (Version None)
Quarter: 2010Q2

REPORT INFORMATION
  Report Type: 
  Country: None (occurrence: None)
  Receive Date: 20100419
  Receipt Date: 20100409
  Transmission Date: 20101027
  Serious: Yes (Other)
  Sender: FDA-Public Use
  Company Number: JP-JNJFOC-20100403483

PATIENT
  Age: 7 Decade
  Sex: Male

DRUGS (1)
  1. CRAVIT [Suspect]
     Indication: CYSTITIS
     Route: 048

REACTIONS (1)
  - BLOOD PRESSURE DECREASED [None]
